FAERS Safety Report 21570316 (Version 3)
Quarter: 2022Q4

REPORT INFORMATION
  Report Type: Report from Study
  Country: CO (occurrence: CO)
  Receive Date: 20221109
  Receipt Date: 20221206
  Transmission Date: 20230112
  Serious: Yes (Hospitalization, Other)
  Sender: FDA-Public Use
  Company Number: CO-BAYER-2022A153419

PATIENT
  Age: 71 Year
  Sex: Male

DRUGS (6)
  1. EYLEA [Suspect]
     Active Substance: AFLIBERCEPT
     Indication: Diabetic retinal oedema
     Dosage: 2 MG, BOTH EYES, SOLUTION FOR INJECTION, 40MG/ML
     Route: 031
     Dates: start: 20210515
  2. EYLEA [Suspect]
     Active Substance: AFLIBERCEPT
     Dosage: 2 MG, BOTH EYES, SOLUTION FOR INJECTION, 40MG/ML
     Route: 031
     Dates: start: 20210719, end: 20210719
  3. EYLEA [Suspect]
     Active Substance: AFLIBERCEPT
     Dosage: 2 MG, BOTH EYES, SOLUTION FOR INJECTION, 40MG/ML
     Route: 031
     Dates: start: 20210818, end: 20210818
  4. EYLEA [Suspect]
     Active Substance: AFLIBERCEPT
     Dosage: 2 MG, BOTH EYES, SOLUTION FOR INJECTION, 40MG/ML
     Route: 031
     Dates: start: 20220505, end: 20220505
  5. EYLEA [Suspect]
     Active Substance: AFLIBERCEPT
     Dosage: 2 MG, BOTH EYES, SOLUTION FOR INJECTION, 40MG/ML
     Route: 031
     Dates: start: 20220630, end: 20220630
  6. EYLEA [Suspect]
     Active Substance: AFLIBERCEPT
     Dosage: 2 MG, BOTH EYES, SOLUTION FOR INJECTION, 40MG/ML
     Route: 031
     Dates: start: 20220928, end: 20220928

REACTIONS (4)
  - Thrombosis [Recovered/Resolved]
  - Thrombectomy [Recovered/Resolved]
  - Arteriovenous fistula thrombosis [Not Recovered/Not Resolved]
  - Inappropriate schedule of product administration [Unknown]

NARRATIVE: CASE EVENT DATE: 20221101
